FAERS Safety Report 6386331-7 (Version None)
Quarter: 2009Q4

REPORT INFORMATION
  Report Type: 
  Country: None (occurrence: None)
  Receive Date: 20091002
  Receipt Date: 20090928
  Transmission Date: 20100525
  Serious: Yes (Death, Other)
  Sender: FDA-Public Use
  Company Number: PHHY2008CA19981

PATIENT
  Sex: Male

DRUGS (3)
  1. SANDOSTATIN LAR [Suspect]
     Indication: CARCINOID TUMOUR
     Dosage: 60 MG, EVERY 10 DAYS
     Route: 030
  2. SANDOSTATIN LAR [Suspect]
     Dosage: 90 MG, QW
     Route: 030
     Dates: start: 20070530, end: 20090908
  3. ATENOLOL [Concomitant]

REACTIONS (18)
  - ASTHENIA [None]
  - BLOOD PRESSURE SYSTOLIC INCREASED [None]
  - DEATH [None]
  - DECREASED APPETITE [None]
  - DIARRHOEA [None]
  - ERYTHEMA [None]
  - HEART RATE DECREASED [None]
  - HYPERAESTHESIA [None]
  - HYPERSOMNIA [None]
  - HYPOTENSION [None]
  - INTESTINAL FUNCTIONAL DISORDER [None]
  - MOVEMENT DISORDER [None]
  - NEEDLE TRACK MARKS [None]
  - OEDEMA [None]
  - PALLOR [None]
  - PENILE OEDEMA [None]
  - SKIN DISORDER [None]
  - SOFT TISSUE DISORDER [None]
